FAERS Safety Report 13256813 (Version 1)
Quarter: 2017Q1

REPORT INFORMATION
  Report Type: Spontaneous
  Country: BR (occurrence: BR)
  Receive Date: 20170221
  Receipt Date: 20170221
  Transmission Date: 20170428
  Serious: Yes (Other)
  Sender: FDA-Public Use
  Company Number: BR-JNJFOC-20170219908

PATIENT

DRUGS (2)
  1. LITHIUM. [Suspect]
     Active Substance: LITHIUM
     Indication: PRODUCT USED FOR UNKNOWN INDICATION
     Dosage: AT A DOSE: 0.6-1.0 MEQ/L
     Route: 065
  2. RISPERIDONE. [Suspect]
     Active Substance: RISPERIDONE
     Indication: MANIA
     Dosage: AT A DOSE OF 2 MG AND AT AN UNSPECIFIED DOSE IN DIFFERENT GROUPS
     Route: 065

REACTIONS (3)
  - Metabolic disorder [Unknown]
  - Polyuria [Unknown]
  - Mental impairment [Unknown]
